FAERS Safety Report 6569723-2 (Version None)
Quarter: 2010Q1

REPORT INFORMATION
  Report Type: 
  Country: None (occurrence: None)
  Receive Date: 20100204
  Receipt Date: 20100129
  Transmission Date: 20100710
  Serious: Yes (Death, Hospitalization)
  Sender: FDA-Public Use
  Company Number: PHHY2010BR03457

PATIENT
  Sex: Female
  Weight: 56 kg

DRUGS (4)
  1. DIOVAN [Suspect]
     Indication: HYPERTENSION
     Dosage: 80 MG, QD
     Route: 048
  2. SOMALGIN [Concomitant]
     Indication: ANTICOAGULANT THERAPY
     Dosage: 325 MG, QD
     Route: 048
  3. LASIX [Concomitant]
     Dosage: 0.5 TABLET (40 MG) DAILY
     Route: 048
  4. DIGOXIN [Concomitant]
     Indication: PAIN
     Dosage: 0.5 TABLET (0.25 MG) DAILY
     Route: 048

REACTIONS (4)
  - CARDIOMYOPATHY [None]
  - MYOCARDIAL INFARCTION [None]
  - RENAL FAILURE [None]
  - RESPIRATORY FAILURE [None]
